FAERS Safety Report 4356784-4 (Version None)
Quarter: 2004Q2

REPORT INFORMATION
  Report Type: 
  Country: None (occurrence: None)
  Receive Date: 20040507
  Receipt Date: 20040430
  Transmission Date: 20050107
  Serious: Yes (Life-Threatening, Hospitalization)
  Sender: FDA-Public Use
  Company Number: 2004211495SE

PATIENT
  Age: 19 Year
  Sex: Male
  Weight: 58.7 kg

DRUGS (1)
  1. GENOTROPIN [Suspect]
     Indication: HYPOPITUITARISM
     Dosage: 1.2 MG, QD
     Dates: start: 19950202, end: 20031130

REACTIONS (2)
  - NEOPLASM RECURRENCE [None]
  - OPTIC NERVE GLIOMA [None]
